FAERS Safety Report 9436716 (Version 1)
Quarter: 2013Q3

REPORT INFORMATION
  Report Type: Report from Study
  Country: CA (occurrence: CA)
  Receive Date: 20130802
  Receipt Date: 20130802
  Transmission Date: 20140515
  Serious: Yes (Disabling)
  Sender: FDA-Public Use
  Company Number: CA-JNJFOC-20130800243

PATIENT
  Age: 63 Year
  Sex: Female
  Weight: 81.6 kg

DRUGS (1)
  1. REMICADE [Suspect]
     Indication: ANKYLOSING SPONDYLITIS
     Route: 042

REACTIONS (5)
  - Back pain [Unknown]
  - Gait disturbance [Unknown]
  - Arthralgia [Unknown]
  - Pelvic pain [Unknown]
  - Abdominal pain [Unknown]
